FAERS Safety Report 6554408-9 (Version None)
Quarter: 2010Q1

REPORT INFORMATION
  Report Type: 
  Country: None (occurrence: None)
  Receive Date: 20100127
  Receipt Date: 20100121
  Transmission Date: 20100710
  Serious: Yes (Other)
  Sender: FDA-Public Use
  Company Number: JP-ALLERGAN-1000921US

PATIENT
  Age: 55 Year
  Sex: Male

DRUGS (3)
  1. PILOCARPINA COLIRIO UNSPECIFIED [Suspect]
     Indication: GLAUCOMA
     Dosage: UNK
     Route: 047
  2. CARTEOROL [Suspect]
     Indication: GLAUCOMA
     Dosage: UNK
     Route: 047
  3. EPINEPHRINE [Suspect]
     Indication: GLAUCOMA
     Dosage: UNK
     Route: 047

REACTIONS (3)
  - CILIARY HYPERAEMIA [None]
  - EYE IRRITATION [None]
  - ULCERATIVE KERATITIS [None]
